FAERS Safety Report 13761954 (Version 2)
Quarter: 2017Q3

REPORT INFORMATION
  Report Type: Spontaneous
  Country: CA (occurrence: CA)
  Receive Date: 20170718
  Receipt Date: 20170720
  Transmission Date: 20171127
  Serious: Yes (Other)
  Sender: FDA-Public Use
  Company Number: CA-ORION CORPORATION ORION PHARMA-TREX2017-1514

PATIENT
  Age: 59 Year
  Sex: Female

DRUGS (5)
  1. HYDROXYCHLOROQUINE [Suspect]
     Active Substance: HYDROXYCHLOROQUINE
     Indication: RHEUMATOID ARTHRITIS
     Route: 065
  2. GOLD [Suspect]
     Active Substance: GOLD
     Route: 065
  3. SULFASALAZINE. [Suspect]
     Active Substance: SULFASALAZINE
     Indication: RHEUMATOID ARTHRITIS
     Route: 065
  4. METHOTREXATE (TRADE NAME UNKNOWN) [Suspect]
     Active Substance: METHOTREXATE
     Indication: RHEUMATOID ARTHRITIS
     Route: 065
  5. ARAVA [Suspect]
     Active Substance: LEFLUNOMIDE
     Indication: RHEUMATOID ARTHRITIS
     Route: 048
     Dates: start: 2014

REACTIONS (12)
  - Red cell distribution width increased [Unknown]
  - Mean cell haemoglobin concentration decreased [Unknown]
  - Blood creatinine increased [Unknown]
  - Alanine aminotransferase increased [Recovered/Resolved]
  - Mean cell volume decreased [Unknown]
  - Mean cell haemoglobin decreased [Not Recovered/Not Resolved]
  - Anti-cyclic citrullinated peptide antibody positive [Unknown]
  - Drug eruption [Unknown]
  - Drug ineffective [Unknown]
  - Haemoglobin decreased [Unknown]
  - Lymphocyte count decreased [Unknown]
  - Glomerular filtration rate decreased [Unknown]

NARRATIVE: CASE EVENT DATE: 20150325
